FAERS Safety Report 18396643 (Version 1)
Quarter: 2020Q4

REPORT INFORMATION
  Report Type: Spontaneous
  Country: US (occurrence: US)
  Receive Date: 20201019
  Receipt Date: 20201019
  Transmission Date: 20210114
  Serious: No
  Sender: FDA-Public Use
  Company Number: US-SA-2020SA291425

PATIENT

DRUGS (2)
  1. DUPIXENT [Suspect]
     Active Substance: DUPILUMAB
     Indication: NASAL POLYPS
     Dosage: 300 MG, QOW
     Dates: start: 20200315
  2. DUPIXENT [Suspect]
     Active Substance: DUPILUMAB
     Indication: ASTHMA

REACTIONS (6)
  - Off label use [Unknown]
  - Eye disorder [Unknown]
  - Abscess [Unknown]
  - Cyst [Unknown]
  - Soft tissue swelling [Unknown]
  - Joint effusion [Unknown]

NARRATIVE: CASE EVENT DATE: 2020
